FAERS Safety Report 24140657 (Version 1)
Quarter: 2024Q3

REPORT INFORMATION
  Report Type: Spontaneous
  Country: GB (occurrence: GB)
  Receive Date: 20240726
  Receipt Date: 20240726
  Transmission Date: 20241017
  Serious: Yes (Other)
  Sender: ACCORD
  Company Number: None

PATIENT
  Age: 67 Year
  Sex: Female

DRUGS (1)
  1. PIRFENIDONE [Suspect]
     Active Substance: PIRFENIDONE
     Indication: Product used for unknown indication

REACTIONS (8)
  - Malaise [Recovering/Resolving]
  - Eye pain [Unknown]
  - Photosensitivity reaction [Recovering/Resolving]
  - Swollen tongue [Recovering/Resolving]
  - Pruritus [Recovering/Resolving]
  - Eye swelling [Unknown]
  - Thermal burn [Recovering/Resolving]
  - Dermatitis bullous [Recovering/Resolving]
